FAERS Safety Report 9526220 (Version 1)
Quarter: 2013Q3

REPORT INFORMATION
  Report Type: Spontaneous
  Country: CA (occurrence: CA)
  Receive Date: 20130916
  Receipt Date: 20130916
  Transmission Date: 20140515
  Serious: Yes (Hospitalization)
  Sender: FDA-Public Use
  Company Number: CA-MYLANLABS-2013S1020082

PATIENT
  Age: 82 Year
  Sex: Male

DRUGS (3)
  1. NITROFURANTOIN [Suspect]
     Indication: CYSTITIS
     Route: 065
  2. TRIMETHOPRIM [Concomitant]
     Indication: CYSTITIS
     Route: 065
  3. ESOMEPRAZOLE [Concomitant]
     Dosage: 40MG DAILY
     Route: 065

REACTIONS (1)
  - Organising pneumonia [Recovering/Resolving]
